FAERS Safety Report 5875904-3 (Version None)
Quarter: 2008Q3

REPORT INFORMATION
  Report Type: 
  Country: None (occurrence: None)
  Receive Date: 20080910
  Receipt Date: 20080901
  Transmission Date: 20090109
  Serious: Yes (Hospitalization)
  Sender: FDA-Public Use
  Company Number: PHHY2008SE19628

PATIENT
  Sex: Female

DRUGS (2)
  1. ZOMETA [Suspect]
  2. PAXENE [Concomitant]
     Indication: BREAST CANCER FEMALE

REACTIONS (2)
  - C-REACTIVE PROTEIN INCREASED [None]
  - PYREXIA [None]
